FAERS Safety Report 9969966 (Version 1)
Quarter: 2014Q1

REPORT INFORMATION
  Report Type: Spontaneous
  Country: CO (occurrence: None)
  Receive Date: 20140304
  Receipt Date: 20140304
  Transmission Date: 20141002
  Serious: Yes (Hospitalization)
  Sender: FDA-Public Use
  Company Number: 2014P1001576

PATIENT
  Age: 64 Year
  Sex: Male

DRUGS (4)
  1. DOXYCYCLINE [Suspect]
     Indication: MALARIA PROPHYLAXIS
  2. HYDROCHLOROTHIAZIDE [Concomitant]
  3. LISINOPRIL [Concomitant]
  4. MELOXICAM [Concomitant]

REACTIONS (3)
  - Drug reaction with eosinophilia and systemic symptoms [None]
  - Erythema multiforme [None]
  - Renal injury [None]
